FAERS Safety Report 24457632 (Version 1)
Quarter: 2024Q4

REPORT INFORMATION
  Report Type: Spontaneous
  Country: US (occurrence: US)
  Receive Date: 20241018
  Receipt Date: 20241018
  Transmission Date: 20250115
  Serious: No
  Sender: BEIGENE
  Company Number: US-BEIGENE-BGN-2024-015944

PATIENT

DRUGS (1)
  1. BRUKINSA [Suspect]
     Active Substance: ZANUBRUTINIB
     Indication: Product used for unknown indication
     Dosage: 80 MILLIGRAM, BID(1 CAPSULE IN THE MORNING AND 1 CAPSULE IN THE EVENING)
     Route: 048
     Dates: start: 20241003

REACTIONS (1)
  - Nasopharyngeal reflux [Unknown]

NARRATIVE: CASE EVENT DATE: 20241004
